FAERS Safety Report 10181753 (Version 1)
Quarter: 2014Q2

REPORT INFORMATION
  Report Type: Spontaneous
  Country: BR (occurrence: BR)
  Receive Date: 20140519
  Receipt Date: 20140519
  Transmission Date: 20141212
  Serious: Yes (Hospitalization)
  Sender: FDA-Public Use
  Company Number: BR-DSJP-DSJ-2014-108124

PATIENT
  Sex: 0

DRUGS (7)
  1. BENICAR HCT [Suspect]
     Indication: HYPERTENSION
     Dosage: 40/12.5 MG, QD
     Route: 048
     Dates: start: 201401
  2. EFFIENT [Suspect]
     Indication: ANGIOPLASTY
     Dosage: 10MG/DAY
     Route: 065
     Dates: start: 20140509, end: 20140509
  3. ACETYLSALICYLIC ACID [Concomitant]
     Dosage: UNK
     Route: 065
  4. METFORMIN [Concomitant]
     Dosage: UNK
     Route: 065
  5. INSULIN [Concomitant]
     Dosage: UNK
     Route: 065
  6. ATENOLOL [Concomitant]
     Dosage: UNK
     Route: 065
  7. PROPATHYL NITRATE [Concomitant]
     Dosage: UNK
     Route: 065

REACTIONS (5)
  - Angioplasty [Recovered/Resolved]
  - Skin hyperpigmentation [Not Recovered/Not Resolved]
  - Blister [Not Recovered/Not Resolved]
  - Pruritus [Not Recovered/Not Resolved]
  - Urticaria [Not Recovered/Not Resolved]
